FAERS Safety Report 6776046-5 (Version None)
Quarter: 2010Q2

REPORT INFORMATION
  Report Type: 
  Country: None (occurrence: None)
  Receive Date: 20100617
  Receipt Date: 20100615
  Transmission Date: 20101027
  Serious: Yes (Disabling)
  Sender: FDA-Public Use
  Company Number: CA-MERCK-1006USA02329

PATIENT
  Age: 48 Year
  Sex: Male
  Weight: 77 kg

DRUGS (3)
  1. JANUVIA [Suspect]
     Route: 048
  2. CRESTOR [Concomitant]
     Route: 065
  3. METFORMIN [Concomitant]
     Route: 065

REACTIONS (3)
  - ANXIETY [None]
  - INSOMNIA [None]
  - IRRITABILITY [None]
